FAERS Safety Report 7094444-X (Version None)
Quarter: 2010Q4

REPORT INFORMATION
  Report Type: 
  Country: None (occurrence: None)
  Receive Date: 20101110
  Receipt Date: 20101028
  Transmission Date: 20110411
  Serious: Yes (Other)
  Sender: FDA-Public Use
  Company Number: PHHY2010US71572

PATIENT
  Sex: Female

DRUGS (4)
  1. ZOMETA [Suspect]
     Dosage: UNK
     Dates: start: 20080301
  2. ANTIBIOTICS [Concomitant]
     Dosage: UNK
  3. HERCEPTIN [Concomitant]
     Dosage: UNK
  4. NAVELBINE [Concomitant]
     Dosage: UNK

REACTIONS (4)
  - OSTEOMYELITIS [None]
  - OSTEONECROSIS OF JAW [None]
  - PAIN IN JAW [None]
  - SWELLING FACE [None]
